FAERS Safety Report 6200370-8 (Version None)
Quarter: 2009Q2

REPORT INFORMATION
  Report Type: 
  Country: None (occurrence: None)
  Receive Date: 20090522
  Receipt Date: 20090518
  Transmission Date: 20091009
  Serious: Yes (Hospitalization, Other)
  Sender: FDA-Public Use
  Company Number: US-ROCHE-624383

PATIENT
  Sex: Female
  Weight: 64.4 kg

DRUGS (4)
  1. BONIVA [Suspect]
     Indication: OSTEOPOROSIS
     Route: 042
     Dates: start: 20080301, end: 20080301
  2. OXAZEPAM [Concomitant]
     Indication: ANXIETY
     Route: 048
     Dates: start: 20040101
  3. PROPRANOLOL [Concomitant]
     Indication: ANXIETY
     Route: 048
     Dates: start: 20040101
  4. MACRODANTIN [Concomitant]
     Dosage: DOSE DECREASED

REACTIONS (10)
  - ALOPECIA [None]
  - ARTHRALGIA [None]
  - ASTHENIA [None]
  - BLADDER PROLAPSE [None]
  - DYSPNOEA [None]
  - FALL [None]
  - LETHARGY [None]
  - PAIN [None]
  - SKIN LESION [None]
  - SYNCOPE [None]
